FAERS Safety Report 10977608 (Version 3)
Quarter: 2015Q3

REPORT INFORMATION
  Report Type: Spontaneous
  Country: US (occurrence: US)
  Receive Date: 20150402
  Receipt Date: 20150707
  Transmission Date: 20151125
  Serious: Yes (Other)
  Sender: FDA-Public Use
  Company Number: US-BAYER-2015-095331

PATIENT
  Age: 31 Year
  Sex: Female
  Weight: 77.55 kg

DRUGS (1)
  1. MIRENA [Suspect]
     Active Substance: LEVONORGESTREL
     Indication: CONTRACEPTION
     Dosage: 20 ?G, CONT
     Route: 015
     Dates: start: 2012, end: 20150327

REACTIONS (8)
  - Abortion spontaneous [None]
  - Pregnancy with contraceptive device [Not Recovered/Not Resolved]
  - Drug ineffective [None]
  - Complication of device removal [None]
  - Device difficult to use [None]
  - Embedded device [None]
  - Device breakage [None]
  - Device issue [None]

NARRATIVE: CASE EVENT DATE: 201502
